FAERS Safety Report 9725580 (Version 1)
Quarter: 2013Q4

REPORT INFORMATION
  Report Type: Report from Study
  Country: DE (occurrence: DE)
  Receive Date: 20131203
  Receipt Date: 20131203
  Transmission Date: 20140711
  Serious: Yes (Hospitalization, Other)
  Sender: FDA-Public Use
  Company Number: DE-SA-2013SA124004

PATIENT
  Age: 61 Year
  Sex: Female
  Weight: 70 kg

DRUGS (8)
  1. MULTAQ [Suspect]
     Indication: ATRIAL FIBRILLATION
     Route: 065
     Dates: start: 20121105, end: 201303
  2. BETA BLOCKING AGENTS [Concomitant]
     Dates: start: 200902
  3. DIGITALIS GLYCOSIDES [Concomitant]
     Dates: start: 200904
  4. VIT K ANTAGONISTS [Concomitant]
     Indication: ANTICOAGULANT THERAPY
     Dates: start: 200901
  5. BISOPROLOL [Concomitant]
  6. RAMIPRIL [Concomitant]
  7. HYDROCHLOROTHIAZIDE [Concomitant]
  8. DIGITOXIN [Concomitant]

REACTIONS (1)
  - Atrial fibrillation [Unknown]
